FAERS Safety Report 18104924 (Version 1)
Quarter: 2020Q3

REPORT INFORMATION
  Report Type: Spontaneous
  Country: US (occurrence: US)
  Receive Date: 20200803
  Receipt Date: 20200803
  Transmission Date: 20201103
  Serious: No
  Sender: FDA-Public Use
  Company Number: US-ALKERMES INC.-ALK-2020-002983

PATIENT
  Age: 23 Year
  Sex: Male
  Weight: 97.51 kg

DRUGS (1)
  1. VIVITROL [Suspect]
     Active Substance: NALTREXONE
     Indication: DRUG DEPENDENCE
     Dosage: 380 MILLIGRAM, QMO
     Route: 030
     Dates: start: 20200619, end: 20200619

REACTIONS (3)
  - Agitation [Unknown]
  - Aggression [Unknown]
  - Irritability [Unknown]

NARRATIVE: CASE EVENT DATE: 202006
